FAERS Safety Report 7572906-6 (Version None)
Quarter: 2011Q2

REPORT INFORMATION
  Report Type: 
  Country: None (occurrence: None)
  Receive Date: 20110627
  Receipt Date: 20110615
  Transmission Date: 20111010
  Serious: Yes (Hospitalization, Other)
  Sender: FDA-Public Use
  Company Number: BR-ELI_LILLY_AND_COMPANY-BR201106004549

PATIENT
  Sex: Male
  Weight: 100 kg

DRUGS (20)
  1. LOSARTAN POTASSICO [Concomitant]
     Indication: HYPERTENSION
     Dosage: 50 MG, BID
     Route: 065
  2. AMLODIPINE BESYLATE [Concomitant]
     Indication: HYPERTENSION
     Dosage: 5 MG, UNKNOWN
     Route: 065
  3. AMLODIPINE BESYLATE [Concomitant]
     Dosage: 5 MG, UNKNOWN
     Route: 065
  4. ALPRAZOLAM [Concomitant]
     Dosage: 0.5 MG, UNK
     Route: 065
  5. CYMBALTA [Suspect]
     Indication: PAIN
     Dosage: 30 MG, QD
     Route: 065
     Dates: start: 20100101, end: 20100101
  6. CODEINA [Concomitant]
     Indication: PAIN
     Dosage: UNK, PRN
     Route: 065
  7. TANDRILAX [Concomitant]
     Indication: ANTIINFLAMMATORY THERAPY
     Dosage: UNK, PRN
     Route: 065
  8. INDOMETHACIN SODIUM [Concomitant]
     Indication: ANTIINFLAMMATORY THERAPY
     Dosage: UNK, PRN
     Route: 065
  9. LOSARTAN POTASSICO [Concomitant]
     Dosage: 50 MG, BID
     Route: 065
  10. INDOMETHACIN SODIUM [Concomitant]
     Dosage: UNK, UNKNOWN
     Route: 065
  11. PANTOPRAZOLE [Concomitant]
     Indication: GASTRIC DISORDER
     Dosage: UNK, UNKNOWN
     Route: 065
  12. SOLU-MEDROL [Concomitant]
     Indication: CHEMOTHERAPY
     Dosage: UNK, UNKNOWN
     Route: 065
  13. SOLU-MEDROL [Concomitant]
     Dosage: UNK, UNKNOWN
     Route: 065
  14. ADALIMUMAB [Concomitant]
     Indication: ARTHRITIS
     Dosage: 40 MG, OTHER
     Route: 065
  15. ADALIMUMAB [Concomitant]
     Dosage: 40 MG, OTHER
     Route: 065
  16. ALPRAZOLAM [Concomitant]
     Indication: ANXIETY
     Dosage: 0.5 MG, UNK
     Route: 065
  17. METHOTREXATE [Concomitant]
     Dosage: UNK, UNKNOWN
     Route: 065
  18. CODEINA [Concomitant]
     Dosage: UNK, UNKNOWN
     Route: 065
  19. TANDRILAX [Concomitant]
     Dosage: UNK, PRN
     Route: 065
  20. CHLOROQUINE [Concomitant]
     Dosage: UNK, UNKNOWN
     Route: 065

REACTIONS (1)
  - PANCREATITIS [None]
